FAERS Safety Report 4413963-5 (Version None)
Quarter: 2004Q3

REPORT INFORMATION
  Report Type: 
  Country: None (occurrence: None)
  Receive Date: 20040802
  Receipt Date: 20040705
  Transmission Date: 20050211
  Serious: Yes (Other)
  Sender: FDA-Public Use
  Company Number: 2004AP000574

PATIENT
  Age: 54 Year
  Sex: Male

DRUGS (13)
  1. DILTIAZEM HYDROCHLORIDE [Suspect]
     Indication: ESSENTIAL HYPERTENSION
     Dosage: 240 MG; EVERY DAY (DAILY); ORAL
     Route: 048
     Dates: end: 20030818
  2. ERYTHROMYCIN [Suspect]
     Dosage: 2 G; EVERY DAY (DAILY); INTRAVENOUS
     Route: 042
     Dates: start: 20030818
  3. TACROLIMUS [Suspect]
     Dosage: 10 MG; EVERY DAY (DAILY)
  4. MYCOPHENOLATE MOFETIL [Concomitant]
  5. WARFARIN SODIUM [Concomitant]
  6. PANTOPRAZOLE [Concomitant]
  7. AMIODARONE [Concomitant]
  8. SODIBIC [Concomitant]
  9. FOSAMAX [Concomitant]
  10. MAGMIN [Concomitant]
  11. GABAPENTIN [Concomitant]
  12. DOTHIEPIN HYDROCHLORIDE [Concomitant]
  13. ENDONE [Concomitant]

REACTIONS (5)
  - CONDITION AGGRAVATED [None]
  - DRUG INTERACTION [None]
  - DRUG LEVEL INCREASED [None]
  - RENAL IMPAIRMENT [None]
  - THERAPEUTIC AGENT TOXICITY [None]
